FAERS Safety Report 20150332 (Version 2)
Quarter: 2021Q4

REPORT INFORMATION
  Report Type: Spontaneous
  Country: US (occurrence: US)
  Receive Date: 20211206
  Receipt Date: 20211214
  Transmission Date: 20220304
  Serious: Yes (Other)
  Sender: FDA-Public Use
  Company Number: US-drreddys-LIT/USA/21/0144495

PATIENT
  Age: 57 Year
  Sex: Male

DRUGS (7)
  1. BORTEZOMIB [Suspect]
     Active Substance: BORTEZOMIB
     Indication: Product used for unknown indication
     Dosage: 4 WEEKLY TREATMENTS, SCHEDULE AS WEEKLY FOR 8 DOSES FOLLOWED BY 2 WEEKLY DOSES
  2. TACROLIMUS [Suspect]
     Active Substance: TACROLIMUS
     Indication: Immunosuppressant drug therapy
     Dosage: SCHEDULE AS WEEKLY FOR 8 DOSES FOLLOWED BY 2 WEEKLY DOSES
  3. DEXAMETHASONE [Suspect]
     Active Substance: DEXAMETHASONE
     Indication: Product used for unknown indication
     Dosage: 4 WEEKLY TREATMENTS, SCHEDULE AS WEEKLY FOR 8 DOSES FOLLOWED BY 2 WEEKLY DOSE
  4. MYCOPHENOLATE MOFETIL [Suspect]
     Active Substance: MYCOPHENOLATE MOFETIL
     Indication: Immunosuppressant drug therapy
  5. PREDNISONE [Suspect]
     Active Substance: PREDNISONE
     Indication: Immunosuppressant drug therapy
  6. CYTOXAN [Suspect]
     Active Substance: CYCLOPHOSPHAMIDE
     Indication: Product used for unknown indication
     Dosage: 4 WEEKLY TREATMENTS, SCHEDULE AS WEEKLY FOR 8 DOSES FOLLOWED BY 2 WEEKLY DOSE
  7. DARATUMUMAB [Suspect]
     Active Substance: DARATUMUMAB
     Indication: Product used for unknown indication
     Dosage: 4 WEEKLY TREATMENTS, SCHEDULE AS WEEKLY FOR 8 DOSES FOLLOWED BY 2 WEEKLY DOSE, TOTAL 14 DOSES

REACTIONS (6)
  - Post transplant lymphoproliferative disorder [Unknown]
  - Plasmablastic lymphoma [Unknown]
  - Toxicity to various agents [Unknown]
  - Renal failure [Unknown]
  - Neuropathy peripheral [Unknown]
  - Deep vein thrombosis [Unknown]
